FAERS Safety Report 18354031 (Version 4)
Quarter: 2020Q4

REPORT INFORMATION
  Report Type: Spontaneous
  Country: JP (occurrence: JP)
  Receive Date: 20201007
  Receipt Date: 20201029
  Transmission Date: 20210114
  Serious: Yes (Other)
  Sender: FDA-Public Use
  Company Number: NVSJ2020JP009738

PATIENT
  Age: 51 Year
  Sex: Female

DRUGS (3)
  1. CYCLOSPORINE. [Suspect]
     Active Substance: CYCLOSPORINE
     Indication: MULTIPLE SCLEROSIS
     Dosage: UNK
     Route: 065
  2. METHYLPREDNISOLONE. [Concomitant]
     Active Substance: METHYLPREDNISOLONE
     Indication: MULTIPLE SCLEROSIS
     Dosage: UNK
     Route: 065
  3. IMUSERA [Suspect]
     Active Substance: FINGOLIMOD HYDROCHLORIDE
     Indication: MULTIPLE SCLEROSIS
     Dosage: UNK
     Route: 065

REACTIONS (8)
  - Cerebral atrophy [Unknown]
  - Multiple sclerosis relapse [Unknown]
  - Spinal cord disorder [Unknown]
  - Therapeutic product effect incomplete [Unknown]
  - Product use in unapproved indication [Unknown]
  - Secondary progressive multiple sclerosis [Unknown]
  - Muscular weakness [Unknown]
  - Mobility decreased [Unknown]
